FAERS Safety Report 21638717 (Version 4)
Quarter: 2023Q2

REPORT INFORMATION
  Report Type: Spontaneous
  Country: US (occurrence: US)
  Receive Date: 20221124
  Receipt Date: 20230426
  Transmission Date: 20230722
  Serious: Yes (Hospitalization, Other)
  Sender: FDA-Public Use
  Company Number: US-GLAXOSMITHKLINE-US2022055763

PATIENT

DRUGS (9)
  1. ZEJULA [Suspect]
     Active Substance: NIRAPARIB
     Indication: Ovarian cancer
     Dosage: 200 MG, QD
     Route: 048
     Dates: start: 20220302, end: 202204
  2. ZEJULA [Suspect]
     Active Substance: NIRAPARIB
     Dosage: 100 MG, QD
  3. ZEJULA [Suspect]
     Active Substance: NIRAPARIB
     Dosage: 100 MG, QD
  4. ZEJULA [Suspect]
     Active Substance: NIRAPARIB
     Dosage: 100 MG, QD
  5. ZEJULA [Suspect]
     Active Substance: NIRAPARIB
     Dosage: 100 MG, QD
     Dates: start: 20220424
  6. ZEJULA [Suspect]
     Active Substance: NIRAPARIB
     Dosage: 100 MG, QD
  7. ZEJULA [Suspect]
     Active Substance: NIRAPARIB
     Dosage: 100 MG, QD
  8. ZEJULA [Suspect]
     Active Substance: NIRAPARIB
     Dosage: 100 MG, QD
     Route: 048
  9. ZEJULA [Suspect]
     Active Substance: NIRAPARIB
     Dosage: 100 MG, QD
     Route: 048

REACTIONS (31)
  - Pneumonia [Unknown]
  - Influenza [Unknown]
  - Respiratory failure [Unknown]
  - Insomnia [Unknown]
  - Asthma [Unknown]
  - Dyspnoea [Unknown]
  - Wheezing [Unknown]
  - Blood potassium decreased [Unknown]
  - Red blood cell count decreased [Not Recovered/Not Resolved]
  - Platelet count decreased [Recovering/Resolving]
  - Arthralgia [Not Recovered/Not Resolved]
  - Blood magnesium decreased [Unknown]
  - Contusion [Not Recovered/Not Resolved]
  - Bone pain [Unknown]
  - Myalgia [Unknown]
  - Muscle spasms [Not Recovered/Not Resolved]
  - Photosensitivity reaction [Unknown]
  - Paraesthesia [Unknown]
  - Anxiety [Unknown]
  - Limb discomfort [Unknown]
  - Pain in extremity [Unknown]
  - White blood cell count decreased [Unknown]
  - Muscular weakness [Unknown]
  - Blood glucose increased [Not Recovered/Not Resolved]
  - Vitamin B12 abnormal [Unknown]
  - Renal disorder [Unknown]
  - Carbohydrate antigen 125 increased [Unknown]
  - Computerised tomogram abnormal [Unknown]
  - Tinnitus [Unknown]
  - Exostosis [Unknown]
  - Neck pain [Unknown]
